FAERS Safety Report 21922338 (Version 1)
Quarter: 2023Q1

REPORT INFORMATION
  Report Type: Report from Study
  Country: US (occurrence: US)
  Receive Date: 20230128
  Receipt Date: 20230128
  Transmission Date: 20230417
  Serious: Yes (Hospitalization, Other)
  Sender: FDA-Public Use
  Company Number: US-ABBVIE-4284665

PATIENT
  Age: 74 Year

DRUGS (1)
  1. HUMIRA [Suspect]
     Active Substance: ADALIMUMAB
     Indication: Psoriatic arthropathy
     Route: 058
     Dates: start: 20070101

REACTIONS (10)
  - Thoracic vertebral fracture [Unknown]
  - Rib fracture [Unknown]
  - Splenic rupture [Unknown]
  - Intra-abdominal haematoma [Unknown]
  - Sternal fracture [Unknown]
  - Lumbar vertebral fracture [Unknown]
  - Road traffic accident [Not Recovered/Not Resolved]
  - Ovarian cancer [Not Recovered/Not Resolved]
  - Cerebrovascular accident [Unknown]
  - Blindness [Unknown]

NARRATIVE: CASE EVENT DATE: 20221210
